FAERS Safety Report 18323538 (Version 1)
Quarter: 2020Q3

REPORT INFORMATION
  Report Type: Spontaneous
  Country: US (occurrence: US)
  Receive Date: 20200929
  Receipt Date: 20200929
  Transmission Date: 20201103
  Serious: No
  Sender: FDA-Public Use
  Company Number: US-BAUSCH-BL-2020-025492

PATIENT
  Age: 86 Year
  Sex: Female

DRUGS (1)
  1. LACRISERT [Suspect]
     Active Substance: HYDROXYPROPYL CELLULOSE
     Indication: SJOGREN^S SYNDROME
     Dosage: DOSE: 1 (UNIT UNSPECIFIED), STARTED ABOUT 10 YEARS AGO
     Route: 047
     Dates: end: 202003

REACTIONS (4)
  - Product availability issue [Unknown]
  - Visual impairment [Unknown]
  - Eye pain [Unknown]
  - Therapy interrupted [Unknown]

NARRATIVE: CASE EVENT DATE: 202003
